FAERS Safety Report 19352639 (Version 1)
Quarter: 2021Q2

REPORT INFORMATION
  Report Type: Report from Study
  Country: CO (occurrence: CO)
  Receive Date: 20210601
  Receipt Date: 20210601
  Transmission Date: 20210717
  Serious: Yes (Other)
  Sender: FDA-Public Use
  Company Number: CO-FERRINGPH-2021FE03251

PATIENT
  Age: 91 Year
  Sex: Male

DRUGS (1)
  1. DEGARELIX [Suspect]
     Active Substance: DEGARELIX
     Indication: PROSTATE CANCER
     Dosage: 80 MG, MONTHLY
     Route: 058
     Dates: start: 20201210

REACTIONS (1)
  - Tachycardia [Recovered/Resolved]

NARRATIVE: CASE EVENT DATE: 20210410
